FAERS Safety Report 5068358-0 (Version None)
Quarter: 2006Q3

REPORT INFORMATION
  Report Type: 
  Country: None (occurrence: None)
  Receive Date: 20060802
  Receipt Date: 20050817
  Transmission Date: 20061208
  Serious: No
  Sender: FDA-Public Use
  Company Number: US-BRISTOL-MYERS SQUIBB COMPANY-13081716

PATIENT
  Sex: Female

DRUGS (5)
  1. COUMADIN [Suspect]
     Indication: PULMONARY EMBOLISM
     Dates: start: 20030101
  2. COUMADIN [Suspect]
     Indication: PULMONARY EMBOLISM
     Dates: start: 20030101
  3. CLEOCIN HYDROCHLORIDE [Concomitant]
     Indication: BIOPSY ENDOMETRIUM
  4. LEVOXYL [Concomitant]
  5. ZESTORETIC [Concomitant]

REACTIONS (2)
  - PRURITUS [None]
  - SKIN WRINKLING [None]
